FAERS Safety Report 7221654-0 (Version None)
Quarter: 2011Q1

REPORT INFORMATION
  Report Type: 
  Country: None (occurrence: None)
  Receive Date: 20110112
  Receipt Date: 20110101
  Transmission Date: 20110831
  Serious: Yes (Death)
  Sender: FDA-Public Use
  Company Number: IR-GENENTECH-312046

PATIENT
  Age: 32 Year
  Sex: Female

DRUGS (1)
  1. MABTHERA [Suspect]
     Indication: SYSTEMIC LUPUS ERYTHEMATOSUS
     Dosage: 2500 UNK, 1/MONTH
     Route: 042
     Dates: start: 20101201, end: 20101201

REACTIONS (2)
  - SEPSIS [None]
  - RENAL FAILURE [None]
